FAERS Safety Report 9592948 (Version 2)
Quarter: 2013Q4

REPORT INFORMATION
  Report Type: Spontaneous
  Country: JP (occurrence: JP)
  Receive Date: 20131004
  Receipt Date: 20131113
  Transmission Date: 20140711
  Serious: Yes (Other)
  Sender: FDA-Public Use
  Company Number: PHHY2013JP110908

PATIENT
  Age: 78 Year
  Sex: Female

DRUGS (2)
  1. VOLTAREN [Suspect]
     Indication: ANALGESIC THERAPY
     Dosage: 25 MG, (AS NECESSARY)
     Route: 048
     Dates: start: 20130930
  2. VOLTAREN [Suspect]
     Indication: ANTIINFLAMMATORY THERAPY

REACTIONS (1)
  - Incorrect route of drug administration [Recovered/Resolved]
